FAERS Safety Report 8393388-0 (Version None)
Quarter: 2012Q2

REPORT INFORMATION
  Report Type: 
  Country: None (occurrence: None)
  Receive Date: 20120529
  Receipt Date: 20120514
  Transmission Date: 20120825
  Serious: Yes (Other)
  Sender: FDA-Public Use
  Company Number: US-ASTELLAS-2012US004991

PATIENT

DRUGS (3)
  1. ERLOTINIB HYDROCHLORIDE [Suspect]
     Dosage: 150 MG, UID/QD
     Route: 048
  2. ERLOTINIB HYDROCHLORIDE [Suspect]
     Indication: HEAD AND NECK CANCER
     Dosage: 50 MG, UID/QD
     Route: 048
  3. CISPLATIN [Suspect]
     Indication: HEAD AND NECK CANCER
     Dosage: 6 MG/M2, MONDAY-FRIDAY
     Route: 042

REACTIONS (2)
  - MUCOSAL INFLAMMATION [None]
  - OFF LABEL USE [None]
